FAERS Safety Report 26028089 (Version 5)
Quarter: 2025Q4

REPORT INFORMATION
  Report Type: Spontaneous
  Country: BR (occurrence: BR)
  Receive Date: 20251111
  Receipt Date: 20251215
  Transmission Date: 20260119
  Serious: Yes (Other)
  Sender: NOVARTIS
  Company Number: BR-002147023-NVSC2025BR172929

PATIENT
  Sex: Female
  Weight: 60 kg

DRUGS (3)
  1. TRILEPTAL [Suspect]
     Active Substance: OXCARBAZEPINE
     Indication: Epilepsy
     Dosage: 300 MG, (1 TAB A DAY, 60 TABLETS FOR 15 YEARS) (AT NIGHT)
     Route: 065
     Dates: start: 2011
  2. DIMETHICONE [Concomitant]
     Active Substance: DIMETHICONE
     Indication: Symptomatic treatment
     Dosage: UNK (DROPS)
     Route: 065
     Dates: start: 2024
  3. SACCHAROMYCES CEREVISIAE [Concomitant]
     Active Substance: SACCHAROMYCES CEREVISIAE
     Indication: Symptomatic treatment
     Dosage: 200 MG
     Route: 065
     Dates: start: 2024

REACTIONS (13)
  - Benign pancreatic neoplasm [Not Recovered/Not Resolved]
  - Hepatic neoplasm [Not Recovered/Not Resolved]
  - Pancreatitis [Not Recovered/Not Resolved]
  - Immunodeficiency [Unknown]
  - Duodenal neoplasm [Unknown]
  - Colitis [Unknown]
  - Malaise [Not Recovered/Not Resolved]
  - Product colour issue [Unknown]
  - Pain [Not Recovered/Not Resolved]
  - Inflammation [Unknown]
  - Drug hypersensitivity [Recovered/Resolved]
  - Cholelithiasis [Unknown]
  - Neurological symptom [Unknown]

NARRATIVE: CASE EVENT DATE: 20240101
